FAERS Safety Report 15846988 (Version 1)
Quarter: 2019Q1

REPORT INFORMATION
  Report Type: Spontaneous
  Country: CN (occurrence: CN)
  Receive Date: 20190121
  Receipt Date: 20190121
  Transmission Date: 20190417
  Serious: Yes (Hospitalization, Other)
  Sender: FDA-Public Use
  Company Number: CN-ROCHE-2246734

PATIENT
  Age: 35 Year
  Sex: Male

DRUGS (19)
  1. METHYLPREDNISOLONE. [Concomitant]
     Active Substance: METHYLPREDNISOLONE
     Route: 065
     Dates: end: 20130315
  2. AZITHROMYCIN ANHYDROUS. [Concomitant]
     Active Substance: AZITHROMYCIN ANHYDROUS
  3. WUZHI [Concomitant]
     Route: 065
  4. LICORICE. [Concomitant]
     Active Substance: LICORICE
  5. VALGANCICLOVIR. [Suspect]
     Active Substance: VALGANCICLOVIR
     Indication: PRODUCT USED FOR UNKNOWN INDICATION
     Route: 065
     Dates: start: 201301, end: 20130315
  6. METHYLPREDNISOLONE. [Concomitant]
     Active Substance: METHYLPREDNISOLONE
     Route: 065
  7. MYCOPHENOLATE MOFETIL. [Suspect]
     Active Substance: MYCOPHENOLATE MOFETIL
     Indication: DRUG THERAPY
     Route: 065
     Dates: start: 20130403
  8. METRONIDAZOLE. [Concomitant]
     Active Substance: METRONIDAZOLE
  9. TEICOPLANIN [Concomitant]
     Active Substance: TEICOPLANIN
  10. TACROLIMUS. [Concomitant]
     Active Substance: TACROLIMUS
  11. ORNIDAZOLE [Concomitant]
     Active Substance: ORNIDAZOLE
     Route: 065
  12. TINIDAZOLE. [Concomitant]
     Active Substance: TINIDAZOLE
     Route: 065
     Dates: start: 201305
  13. MYCOPHENOLATE MOFETIL. [Suspect]
     Active Substance: MYCOPHENOLATE MOFETIL
     Route: 065
     Dates: start: 20130419
  14. SULFAMETHOXAZOLE [Concomitant]
     Active Substance: SULFAMETHOXAZOLE
     Route: 065
  15. VORICONAZOLE. [Concomitant]
     Active Substance: VORICONAZOLE
     Route: 065
  16. SODIUM CHLORIDE. [Concomitant]
     Active Substance: SODIUM CHLORIDE
     Route: 042
  17. SULBACTAM [Concomitant]
     Active Substance: SULBACTAM
  18. ROCEPHIN [Suspect]
     Active Substance: CEFTRIAXONE SODIUM
     Indication: PRODUCT USED FOR UNKNOWN INDICATION
     Route: 065
  19. CEFOPERAZONE SODIUM [Concomitant]
     Active Substance: CEFOPERAZONE SODIUM
     Route: 065

REACTIONS (9)
  - Interstitial lung disease [Recovered/Resolved]
  - Amoebic dysentery [Recovered/Resolved]
  - Hepatic necrosis [Recovered/Resolved]
  - Kidney transplant rejection [Recovered/Resolved]
  - Hepatic amoebiasis [Recovered/Resolved]
  - Drug-induced liver injury [Recovered/Resolved]
  - Hepatitis [Recovered/Resolved]
  - Liver function test decreased [Recovered/Resolved]
  - Anaemia [Recovered/Resolved]

NARRATIVE: CASE EVENT DATE: 20130220
